FAERS Safety Report 24761109 (Version 2)
Quarter: 2024Q4

REPORT INFORMATION
  Report Type: Report from Study
  Country: US (occurrence: US)
  Receive Date: 20241220
  Receipt Date: 20241227
  Transmission Date: 20250115
  Serious: Yes (Other)
  Sender: IPSEN BIOPHARMACEUTICALS, INC.
  Company Number: US-IPSEN Group, Research and Development-2024-20798

PATIENT
  Age: 70 Year
  Sex: Female

DRUGS (2)
  1. IQIRVO [Suspect]
     Active Substance: ELAFIBRANOR
     Indication: Primary biliary cholangitis
     Dosage: 80 MG ONCE DAILY
     Route: 048
     Dates: start: 20241003, end: 20241213
  2. IQIRVO [Suspect]
     Active Substance: ELAFIBRANOR
     Dosage: 80 MG ONCE DAILY
     Route: 048
     Dates: start: 20240927, end: 20241213

REACTIONS (7)
  - Myalgia [Not Recovered/Not Resolved]
  - Muscle spasms [Recovered/Resolved]
  - Pain in extremity [Unknown]
  - Arthralgia [Not Recovered/Not Resolved]
  - Arthralgia [Unknown]
  - Pruritus [Unknown]
  - Knee operation [Unknown]

NARRATIVE: CASE EVENT DATE: 20241005
